FAERS Safety Report 8462886-3 (Version None)
Quarter: 2012Q2

REPORT INFORMATION
  Report Type: 
  Country: None (occurrence: None)
  Receive Date: 20120625
  Receipt Date: 20120619
  Transmission Date: 20120825
  Serious: No
  Sender: FDA-Public Use
  Company Number: US-PFIZER INC-2012147883

PATIENT

DRUGS (2)
  1. IBUPROFEN (ADVIL) [Suspect]
     Indication: ARTHRALGIA
  2. IBUPROFEN (ADVIL) [Suspect]
     Indication: PAIN IN EXTREMITY
     Dosage: 1600 MG (200 MG  OF 4 TABLETS IN THE MORNING AND 4 TABLETS IN THE LATE AFTERNOON)

REACTIONS (2)
  - OVERDOSE [None]
  - PAIN [None]
